FAERS Safety Report 14417207 (Version 2)
Quarter: 2018Q1

REPORT INFORMATION
  Report Type: Spontaneous
  Country: HK (occurrence: HK)
  Receive Date: 20180122
  Receipt Date: 20180216
  Transmission Date: 20180509
  Serious: Yes (Other)
  Sender: FDA-Public Use
  Company Number: PHHY2018HK005985

PATIENT
  Age: 26 Year
  Sex: Male
  Weight: 56 kg

DRUGS (1)
  1. COSENTYX [Suspect]
     Active Substance: SECUKINUMAB
     Indication: PSORIATIC ARTHROPATHY
     Dosage: 150 MG, UNK  (14 DOSES)
     Route: 065
     Dates: start: 201612, end: 201712

REACTIONS (3)
  - Psoriasis [Unknown]
  - Pulmonary mass [Unknown]
  - Pulmonary fibrosis [Unknown]

NARRATIVE: CASE EVENT DATE: 201710
